FAERS Safety Report 10190170 (Version 1)
Quarter: 2014Q2

REPORT INFORMATION
  Report Type: Spontaneous
  Country: BR (occurrence: BR)
  Receive Date: 20140522
  Receipt Date: 20140522
  Transmission Date: 20141212
  Serious: Yes (Hospitalization, Other)
  Sender: FDA-Public Use
  Company Number: BR-MPIJNJ-2014JNJ003484

PATIENT
  Sex: 0

DRUGS (3)
  1. VELCADE [Suspect]
     Indication: WALDENSTROM^S MACROGLOBULINAEMIA
     Route: 065
  2. CYCLOPHOSPHAMIDE [Concomitant]
     Indication: WALDENSTROM^S MACROGLOBULINAEMIA
  3. DEXAMETHASONE [Concomitant]
     Indication: WALDENSTROM^S MACROGLOBULINAEMIA

REACTIONS (2)
  - Myocarditis [Unknown]
  - Off label use [Unknown]
